FAERS Safety Report 16230026 (Version 7)
Quarter: 2019Q4

REPORT INFORMATION
  Report Type: Report from Study
  Country: US (occurrence: US)
  Receive Date: 20190423
  Receipt Date: 20191211
  Transmission Date: 20200122
  Serious: Yes (Hospitalization, Other)
  Sender: FDA-Public Use
  Company Number: US-TESARO-2018-TSO2599-US

PATIENT
  Age: 67 Year
  Sex: Female
  Weight: 61 kg

DRUGS (3)
  1. NIRAPARIB [Suspect]
     Active Substance: NIRAPARIB
     Indication: OVARIAN CANCER
     Dosage: 200 MG, UNK
     Dates: start: 20181207, end: 20190107
  2. NIRAPARIB [Suspect]
     Active Substance: NIRAPARIB
     Dosage: 100 MG, QD
     Route: 065
     Dates: start: 20190123
  3. NIRAPARIB [Suspect]
     Active Substance: NIRAPARIB
     Dosage: 100 MG, QD
     Route: 065

REACTIONS (24)
  - Platelet count decreased [Recovered/Resolved]
  - Decreased appetite [Not Recovered/Not Resolved]
  - Anaemia [Unknown]
  - Cystitis [Not Recovered/Not Resolved]
  - Candida infection [Not Recovered/Not Resolved]
  - Tremor [Recovered/Resolved]
  - Fatigue [Recovering/Resolving]
  - Malignant neoplasm progression [Unknown]
  - Feeding disorder [Recovering/Resolving]
  - Alopecia [Unknown]
  - Constipation [Not Recovered/Not Resolved]
  - Renal impairment [Recovering/Resolving]
  - Nervousness [Recovered/Resolved]
  - Nausea [Recovered/Resolved]
  - Dehydration [Recovered/Resolved]
  - Malaise [Recovering/Resolving]
  - Sinusitis [Unknown]
  - Carbohydrate antigen 125 increased [Unknown]
  - Stomatitis [Not Recovered/Not Resolved]
  - Weight decreased [Not Recovered/Not Resolved]
  - Nausea [Not Recovered/Not Resolved]
  - Blood pressure decreased [Unknown]
  - Asthenia [Recovering/Resolving]
  - Temperature intolerance [Not Recovered/Not Resolved]

NARRATIVE: CASE EVENT DATE: 201812
